FAERS Safety Report 9131894 (Version 1)
Quarter: 2013Q1

REPORT INFORMATION
  Report Type: Spontaneous
  Country: US (occurrence: US)
  Receive Date: 20130301
  Receipt Date: 20130301
  Transmission Date: 20140127
  Serious: Yes (Hospitalization, Other)
  Sender: FDA-Public Use
  Company Number: US-JNJFOC-20130211839

PATIENT
  Sex: Male
  Weight: 85.73 kg

DRUGS (6)
  1. TYLOX [Suspect]
     Indication: NERVE INJURY
     Route: 048
     Dates: start: 1995, end: 2009
  2. ACETAMINOPHEN\OXYCODONE\OXYCODONE HYDROCHLORIDE [Suspect]
     Indication: NERVE INJURY
     Route: 048
     Dates: start: 2009, end: 2009
  3. UNSPECIFIED INGREDIENTS [Concomitant]
     Indication: PANCREAS TRANSPLANT
     Dates: start: 19941203
  4. UNSPECIFIED INGREDIENTS [Concomitant]
     Indication: RENAL TRANSPLANT
     Dates: start: 19941203
  5. CELLCEPT [Concomitant]
     Indication: PANCREAS TRANSPLANT
     Dates: start: 19941203
  6. CELLCEPT [Concomitant]
     Indication: RENAL TRANSPLANT
     Dates: start: 19941203

REACTIONS (4)
  - Renal disorder [Recovered/Resolved]
  - Blood cholesterol increased [Not Recovered/Not Resolved]
  - Chest pain [Recovered/Resolved]
  - Adverse drug reaction [Recovered/Resolved]
